FAERS Safety Report 14546243 (Version 4)
Quarter: 2018Q1

REPORT INFORMATION
  Report Type: Spontaneous
  Country: FR (occurrence: FR)
  Receive Date: 20180219
  Receipt Date: 20180319
  Transmission Date: 20180509
  Serious: Yes (Death)
  Sender: FDA-Public Use
  Company Number: FR-JNJFOC-20180218987

PATIENT
  Age: 3 Year
  Sex: Female

DRUGS (3)
  1. IMODIUM [Suspect]
     Active Substance: LOPERAMIDE HYDROCHLORIDE
     Route: 065
  2. IMODIUM [Suspect]
     Active Substance: LOPERAMIDE HYDROCHLORIDE
     Indication: GASTRITIS PROPHYLAXIS
     Route: 065
     Dates: start: 20160307
  3. MOTILIUM [Suspect]
     Active Substance: DOMPERIDONE
     Indication: GASTRITIS PROPHYLAXIS
     Route: 065
     Dates: start: 20160307

REACTIONS (2)
  - Overdose [Fatal]
  - Death [Fatal]
